FAERS Safety Report 16857466 (Version 1)
Quarter: 2019Q3

REPORT INFORMATION
  Report Type: Spontaneous
  Country: GB (occurrence: JP)
  Receive Date: 20190926
  Receipt Date: 20190926
  Transmission Date: 20191005
  Serious: Yes (Other)
  Sender: FDA-Public Use
  Company Number: JP-ASTELLAS-2019US038221

PATIENT
  Age: 5 Decade
  Sex: Female

DRUGS (1)
  1. TARCEVA [Suspect]
     Active Substance: ERLOTINIB HYDROCHLORIDE
     Indication: NON-SMALL CELL LUNG CANCER
     Dosage: UNK UNK, UNKNOWN FREQ. (DOSAGE IS UNCERTAIN.)
     Route: 048

REACTIONS (3)
  - Intentional product use issue [Unknown]
  - Malignant neoplasm progression [Unknown]
  - Off label use [Unknown]
